FAERS Safety Report 7067395-4 (Version None)
Quarter: 2010Q4

REPORT INFORMATION
  Report Type: 
  Country: None (occurrence: None)
  Receive Date: 20101026
  Receipt Date: 20101026
  Transmission Date: 20110411
  Serious: Yes (Other)
  Sender: FDA-Public Use
  Company Number: None

PATIENT
  Age: 11 Year
  Sex: Male
  Weight: 43.0917 kg

DRUGS (1)
  1. STRATTERA [Suspect]
     Indication: ATTENTION DEFICIT/HYPERACTIVITY DISORDER
     Dosage: 18 MG ONCE DAILY PO
     Route: 048
     Dates: start: 20101012, end: 20101025

REACTIONS (3)
  - ABDOMINAL PAIN UPPER [None]
  - CRYING [None]
  - VOMITING [None]
